FAERS Safety Report 4864398-2 (Version None)
Quarter: 2005Q4

REPORT INFORMATION
  Report Type: 
  Country: None (occurrence: None)
  Receive Date: 20051222
  Receipt Date: 20051213
  Transmission Date: 20060501
  Serious: Yes (Hospitalization)
  Sender: FDA-Public Use
  Company Number: JP-BRISTOL-MYERS SQUIBB COMPANY-13214457

PATIENT
  Age: 2 Year
  Sex: Male

DRUGS (2)
  1. VEPESID [Suspect]
     Indication: NEUROBLASTOMA
     Route: 042
     Dates: start: 20041009, end: 20041112
  2. IFOSFAMIDE [Concomitant]
     Indication: NEUROBLASTOMA
     Route: 042
     Dates: start: 20041108, end: 20041111

REACTIONS (3)
  - BONE MARROW FAILURE [None]
  - FUNGAL ENDOCARDITIS [None]
  - SYSTEMIC CANDIDA [None]
